FAERS Safety Report 7424976-3 (Version None)
Quarter: 2011Q2

REPORT INFORMATION
  Report Type: 
  Country: None (occurrence: None)
  Receive Date: 20110419
  Receipt Date: 20110324
  Transmission Date: 20111010
  Serious: Yes (Hospitalization, Other)
  Sender: FDA-Public Use
  Company Number: US-BAYER-201035446NA

PATIENT
  Age: 45 Year
  Sex: Female
  Weight: 90.703 kg

DRUGS (9)
  1. SYNTHROID [Concomitant]
     Indication: HYPOTHYROIDISM
     Dosage: UNK UNK, QD
     Dates: start: 20030101, end: 20070801
  2. OXYCODONE HCL AND ACETAMINOPHEN [Concomitant]
     Indication: PAIN
     Dosage: UNK UNK, PRN
     Dates: start: 20070822, end: 20070824
  3. PERCOCET [Concomitant]
  4. SENNA [Concomitant]
  5. MS CONTIN [Concomitant]
  6. AZITHROMYCIN [Concomitant]
  7. MORPHINE SULFATE [Concomitant]
  8. YAZ [Suspect]
     Indication: MENORRHAGIA
     Dosage: 1 TAB/DAY
     Route: 048
     Dates: start: 20070401, end: 20070801
  9. COLACE [Concomitant]

REACTIONS (4)
  - ABDOMINAL PAIN UPPER [None]
  - PULMONARY INFARCTION [None]
  - PULMONARY EMBOLISM [None]
  - DYSPNOEA [None]
